FAERS Safety Report 16525616 (Version 1)
Quarter: 2019Q3

REPORT INFORMATION
  Report Type: Spontaneous
  Country: US (occurrence: US)
  Receive Date: 20190522
  Receipt Date: 20190522
  Transmission Date: 20191004
  Serious: Yes (Hospitalization)
  Sender: FDA-Public Use
  Company Number: None

PATIENT
  Age: 63 Year
  Sex: Female
  Weight: 59.4 kg

DRUGS (4)
  1. TEMOZOLOMIDE. [Concomitant]
     Active Substance: TEMOZOLOMIDE
  2. NANOLIPOSOMAL [Concomitant]
  3. TEMOZOLOMIDE. [Suspect]
     Active Substance: TEMOZOLOMIDE
  4. IRINOTECAN [Concomitant]
     Active Substance: IRINOTECAN

REACTIONS (4)
  - Hemiparesis [None]
  - Disease progression [None]
  - Fall [None]
  - Neurological decompensation [None]

NARRATIVE: CASE EVENT DATE: 20190420
